FAERS Safety Report 24659760 (Version 1)
Quarter: 2024Q4

REPORT INFORMATION
  Report Type: Spontaneous
  Country: GB (occurrence: GB)
  Receive Date: 20241125
  Receipt Date: 20241125
  Transmission Date: 20250114
  Serious: Yes (Other)
  Sender: TORRENT PHARMA INC.
  Company Number: None

PATIENT
  Age: 76 Year
  Sex: Male

DRUGS (1)
  1. MEMANTINE [Suspect]
     Active Substance: MEMANTINE
     Indication: Memory impairment
     Dosage: 5ML FOR TWO WEEKS THEN 10 ML FOR 2 WEEKS
     Route: 065

REACTIONS (4)
  - Dizziness [Unknown]
  - Vomiting [Unknown]
  - Dementia [Unknown]
  - Illness [Unknown]
